FAERS Safety Report 14964225 (Version 1)
Quarter: 2018Q2

REPORT INFORMATION
  Report Type: Spontaneous
  Country: JP (occurrence: JP)
  Receive Date: 20180601
  Receipt Date: 20180601
  Transmission Date: 20180711
  Serious: Yes (Other)
  Sender: FDA-Public Use
  Company Number: JP-009507513-1805JPN002820J

PATIENT
  Age: 73 Year
  Sex: Male

DRUGS (1)
  1. KEYTRUDA [Suspect]
     Active Substance: PEMBROLIZUMAB
     Indication: BLADDER CANCER
     Dosage: 200 MG, Q3W
     Route: 041
     Dates: start: 20180406, end: 20180427

REACTIONS (3)
  - Palmar erythema [Recovering/Resolving]
  - Lip erythema [Recovering/Resolving]
  - Necrosis [Unknown]

NARRATIVE: CASE EVENT DATE: 201805
